FAERS Safety Report 6116769-4 (Version None)
Quarter: 2009Q1

REPORT INFORMATION
  Report Type: 
  Country: None (occurrence: None)
  Receive Date: 20090314
  Receipt Date: 20081223
  Transmission Date: 20090719
  Serious: No
  Sender: FDA-Public Use
  Company Number: US-ABBOTT-08P-163-0494747-00

PATIENT
  Sex: Female
  Weight: 54.48 kg

DRUGS (7)
  1. HUMIRA [Suspect]
     Indication: CROHN'S DISEASE
     Route: 058
     Dates: start: 20081101
  2. HUMIRA [Suspect]
     Indication: ANKYLOSING SPONDYLITIS
  3. HUMIRA [Suspect]
     Indication: SACROILIITIS
  4. PAMELOR [Concomitant]
     Indication: DEPRESSION
     Route: 048
     Dates: start: 20080901
  5. PAMELOR [Concomitant]
     Indication: ANXIETY
  6. MULTI-VITAMIN [Concomitant]
     Indication: VITAMIN SUPPLEMENTATION
     Route: 048
  7. CALCIUM SUPPLEMENT [Concomitant]
     Indication: VITAMIN SUPPLEMENTATION
     Route: 048

REACTIONS (2)
  - ARTHRALGIA [None]
  - INJECTION SITE PAIN [None]
